FAERS Safety Report 4335895-3 (Version None)
Quarter: 2004Q2

REPORT INFORMATION
  Report Type: 
  Country: None (occurrence: None)
  Receive Date: 20040405
  Receipt Date: 20040322
  Transmission Date: 20050107
  Serious: Yes (Hospitalization)
  Sender: FDA-Public Use
  Company Number: 04P-150-0250278-00

PATIENT
  Age: 80 Year
  Sex: Male

DRUGS (8)
  1. HUMIRA [Suspect]
     Indication: RHEUMATOID ARTHRITIS
     Dosage: 40 MG, SUBCUTANEOUS
     Route: 058
     Dates: start: 20031223, end: 20031223
  2. HUMIRA [Suspect]
     Indication: SPONDYLITIS
     Dosage: 40 MG, SUBCUTANEOUS
     Route: 058
     Dates: start: 20031223, end: 20031223
  3. GALANTAMINE [Suspect]
     Dosage: 8 MG, 2 IN 1 D, PER ORAL
     Route: 048
     Dates: start: 20031211, end: 20040109
  4. ETANERCEPT [Suspect]
     Dosage: 1 ML, 2 IN 1 WK, SUBCUTANEOUS
     Route: 058
     Dates: start: 20040120, end: 20040123
  5. METHOTREXATE [Suspect]
     Dates: start: 20040101
  6. PREDNISOLONE [Concomitant]
  7. NAPROXEN [Concomitant]
  8. LEKOVIT CA [Concomitant]

REACTIONS (11)
  - ACUTE GENERALISED EXANTHEMATOUS PUSTULOSIS [None]
  - BLOOD CREATININE INCREASED [None]
  - ECZEMA INFECTED [None]
  - FLUSHING [None]
  - HAEMOGLOBIN DECREASED [None]
  - INFECTION [None]
  - OEDEMA PERIPHERAL [None]
  - PAIN IN EXTREMITY [None]
  - PLATELET COUNT INCREASED [None]
  - RASH [None]
  - SKIN ULCER HAEMORRHAGE [None]
